FAERS Safety Report 5354853-3 (Version None)
Quarter: 2007Q2

REPORT INFORMATION
  Report Type: 
  Country: None (occurrence: None)
  Receive Date: 20070612
  Receipt Date: 20070531
  Transmission Date: 20071010
  Serious: Yes (Hospitalization, Other)
  Sender: FDA-Public Use
  Company Number: AU-PFIZER INC-2007034934

PATIENT
  Sex: Female
  Weight: 49.4 kg

DRUGS (4)
  1. SUTENT [Suspect]
     Route: 048
     Dates: start: 20061123, end: 20070424
  2. NOTEN [Concomitant]
     Dosage: DAILY DOSE:5MG
     Route: 048
  3. SERETIDE [Concomitant]
     Route: 055
  4. VENTOLIN [Concomitant]
     Route: 055

REACTIONS (6)
  - DIARRHOEA [None]
  - DYSPHAGIA [None]
  - FATIGUE [None]
  - MALIGNANT NEOPLASM PROGRESSION [None]
  - NAUSEA [None]
  - NEOPLASM MALIGNANT [None]
